FAERS Safety Report 5292142-6 (Version None)
Quarter: 2007Q2

REPORT INFORMATION
  Report Type: 
  Country: None (occurrence: None)
  Receive Date: 20070410
  Receipt Date: 20070402
  Transmission Date: 20071010
  Serious: Yes (Hospitalization)
  Sender: FDA-Public Use
  Company Number: KW-GLAXOSMITHKLINE-B0078206A

PATIENT
  Age: 10 Month
  Sex: Male

DRUGS (1)
  1. CEFUROXIME [Suspect]
     Indication: BRONCHOPNEUMONIA
     Route: 042

REACTIONS (5)
  - ABDOMINAL DISTENSION [None]
  - CONSTIPATION [None]
  - DIARRHOEA [None]
  - ILEUS PARALYTIC [None]
  - X-RAY ABNORMAL [None]
